FAERS Safety Report 9512887 (Version 3)
Quarter: 2013Q4

REPORT INFORMATION
  Report Type: Spontaneous
  Country: US (occurrence: US)
  Receive Date: 20130910
  Receipt Date: 20131209
  Transmission Date: 20140711
  Serious: No
  Sender: FDA-Public Use
  Company Number: US-ASTELLAS-2013US008399

PATIENT
  Age: 85 Year
  Sex: Male

DRUGS (1)
  1. XTANDI [Suspect]
     Indication: PROSTATE CANCER
     Dosage: UNK , UID/QD
     Route: 048
     Dates: start: 20130711, end: 20130711

REACTIONS (3)
  - Oesophageal pain [Recovered/Resolved]
  - Retching [Recovered/Resolved]
  - Choking [Recovered/Resolved]
